FAERS Safety Report 4620019-5 (Version None)
Quarter: 2005Q1

REPORT INFORMATION
  Report Type: 
  Country: None (occurrence: None)
  Receive Date: 20050324
  Receipt Date: 20050310
  Transmission Date: 20050727
  Serious: Yes (Hospitalization)
  Sender: FDA-Public Use
  Company Number: DSA_26131_2005

PATIENT
  Age: 65 Year
  Sex: Male

DRUGS (8)
  1. ENALAPRIL MALEATE [Suspect]
     Indication: HYPERTENSION
     Dosage: 20 MG QD PO
     Route: 048
     Dates: start: 20041101, end: 20050215
  2. ATENOLOL [Suspect]
     Indication: HYPERTENSION
     Dosage: 50 MG Q DAY PO
     Route: 048
     Dates: start: 20041101, end: 20050215
  3. OMEPRAZOLE [Suspect]
     Dosage: 20 MG Q DAY PO
     Route: 048
     Dates: start: 20041101, end: 20050215
  4. GLYBURIDE [Suspect]
     Indication: DIABETES MELLITUS
     Dosage: 5 MG TID PO
     Route: 048
     Dates: start: 20041101, end: 20050215
  5. AMLODIPINE BESYLATE [Suspect]
     Indication: HYPERTENSION
     Dosage: 5 MG BID PO
     Route: 048
     Dates: start: 20041101, end: 20050215
  6. FUROSEMIDE [Concomitant]
  7. LEVOFLOXACIN [Concomitant]
  8. FOSINOPRIL [Concomitant]

REACTIONS (10)
  - BONE MARROW MYELOGRAM ABNORMAL [None]
  - COAGULATION FACTOR V LEVEL DECREASED [None]
  - COAGULOPATHY [None]
  - GENERALISED OEDEMA [None]
  - HYPERKALAEMIA [None]
  - IMMUNOGLOBULINS INCREASED [None]
  - MEGAKARYOCYTES INCREASED [None]
  - PROTHROMBIN TIME RATIO DECREASED [None]
  - RENAL FAILURE ACUTE [None]
  - THROMBOCYTOPENIA [None]
